FAERS Safety Report 7536433-4 (Version None)
Quarter: 2011Q2

REPORT INFORMATION
  Report Type: 
  Country: None (occurrence: None)
  Receive Date: 20110602
  Receipt Date: 20110517
  Transmission Date: 20111010
  Serious: Yes (Other)
  Sender: FDA-Public Use
  Company Number: 2010AP001957

PATIENT
  Age: 49 Year
  Sex: Female

DRUGS (8)
  1. TEMAZEPAM [Concomitant]
  2. RAMIPRIL [Concomitant]
  3. LAMOTRIGINE [Suspect]
     Indication: CONVULSION
     Dosage: 50 MG;
     Dates: end: 20100801
  4. PAROXETINE HCL [Concomitant]
  5. AMISULPRIDE (AMISULPRIDE) [Suspect]
     Indication: SCHIZOPHRENIA
     Dosage: PO, 200 MG; PO
     Route: 048
     Dates: end: 20100801
  6. CLOZARIL [Suspect]
     Indication: SCHIZOPHRENIA
     Dosage: 600 MG; PO, 600 MG;
     Dates: start: 20050207
  7. CLOZARIL [Suspect]
     Indication: SCHIZOPHRENIA
     Dosage: 600 MG; PO, 600 MG;
     Dates: start: 20030101, end: 20041001
  8. CLOZARIL [Suspect]
     Indication: SCHIZOPHRENIA
     Dosage: 600 MG; PO, 600 MG;
     Dates: start: 20030101

REACTIONS (7)
  - NEUTROPHIL COUNT INCREASED [None]
  - BREAST CANCER FEMALE [None]
  - WHITE BLOOD CELL COUNT INCREASED [None]
  - MENTAL IMPAIRMENT [None]
  - BREAST ABSCESS [None]
  - METASTASES TO SPINE [None]
  - PLATELET COUNT DECREASED [None]
